FAERS Safety Report 18018449 (Version 1)
Quarter: 2020Q3

REPORT INFORMATION
  Report Type: Spontaneous
  Country: US (occurrence: US)
  Receive Date: 20200713
  Receipt Date: 20200713
  Transmission Date: 20201103
  Serious: Yes (Life-Threatening, Hospitalization)
  Sender: FDA-Public Use
  Company Number: None

PATIENT
  Age: 35 Year
  Sex: Male
  Weight: 121 kg

DRUGS (1)
  1. ARIPIPRAZOLE (ARIPIPRAZOLE 20MG TAB) [Suspect]
     Active Substance: ARIPIPRAZOLE
     Indication: AFFECTIVE DISORDER
     Route: 048
     Dates: start: 20200313, end: 20200706

REACTIONS (2)
  - Diabetic ketoacidosis [None]
  - Acute kidney injury [None]

NARRATIVE: CASE EVENT DATE: 20200706
